FAERS Safety Report 5342502-X (Version None)
Quarter: 2007Q2

REPORT INFORMATION
  Report Type: 
  Country: None (occurrence: None)
  Receive Date: 20070601
  Receipt Date: 20070517
  Transmission Date: 20071010
  Serious: Yes (Hospitalization)
  Sender: FDA-Public Use
  Company Number: US-SHR-US-2005-004065

PATIENT
  Age: 54 Year
  Sex: Female

DRUGS (10)
  1. BETASERON [Suspect]
     Indication: RELAPSING-REMITTING MULTIPLE SCLEROSIS
     Dosage: 8 MIU, EVERY 2D
     Route: 058
     Dates: start: 20040506, end: 20050301
  2. BETASERON [Suspect]
     Dosage: 4 MIU, EVERY 2D
     Route: 058
     Dates: start: 20061115
  3. FOLIC ACID [Concomitant]
     Dosage: 1 MG, 1X/DAY
     Dates: end: 20050301
  4. VITAMIN B-12 [Concomitant]
     Dosage: 1000 A?G, 1X/MONTH
     Dates: end: 20050301
  5. REMERON [Concomitant]
     Dosage: 15 MG, BED T.
  6. BEXTRA [Concomitant]
     Dosage: 20 MG, 1X/DAY
  7. KEPPRA [Concomitant]
     Dosage: 500 MG, BED T.
     Dates: end: 20050401
  8. NEXIUM [Concomitant]
     Dosage: 40 MG, 2X/DAY
  9. POTASSIUM CHLORIDE [Concomitant]
     Dosage: 20 MEQ, 1X/DAY
  10. VITAMIN E [Concomitant]
     Dosage: 400 IU, UNK
     Dates: end: 20050401

REACTIONS (13)
  - BLOOD FOLATE DECREASED [None]
  - CYCLOTHYMIC DISORDER [None]
  - DELUSION [None]
  - DEPRESSION [None]
  - DISSOCIATIVE DISORDER [None]
  - FATIGUE [None]
  - MULTIPLE SCLEROSIS [None]
  - OEDEMA PERIPHERAL [None]
  - PERSONALITY DISORDER [None]
  - RED BLOOD CELL COUNT DECREASED [None]
  - VITAMIN B12 DECREASED [None]
  - WEIGHT DECREASED [None]
  - WHITE BLOOD CELL COUNT DECREASED [None]
